FAERS Safety Report 20852409 (Version 1)
Quarter: 2022Q2

REPORT INFORMATION
  Report Type: Report from Study
  Country: GB (occurrence: GB)
  Receive Date: 20220520
  Receipt Date: 20220520
  Transmission Date: 20220721
  Serious: Yes (Other)
  Sender: FDA-Public Use
  Company Number: GB-NOVARTISPH-NVSC2021GB262160

PATIENT
  Sex: Female

DRUGS (1)
  1. MAYZENT [Suspect]
     Active Substance: SIPONIMOD
     Indication: Multiple sclerosis
     Dosage: UNK
     Route: 065
     Dates: start: 20211115

REACTIONS (8)
  - Diplopia [Not Recovered/Not Resolved]
  - Balance disorder [Unknown]
  - Tremor [Not Recovered/Not Resolved]
  - Contusion [Unknown]
  - Seizure [Unknown]
  - Fall [Unknown]
  - Amnesia [Unknown]
  - Anxiety [Unknown]
